FAERS Safety Report 8124464-5 (Version None)
Quarter: 2012Q1

REPORT INFORMATION
  Report Type: 
  Country: None (occurrence: None)
  Receive Date: 20120209
  Receipt Date: 20120206
  Transmission Date: 20120608
  Serious: Yes (Other)
  Sender: FDA-Public Use
  Company Number: US-BAYER-2012-012599

PATIENT

DRUGS (4)
  1. ALEVE (CAPLET) [Suspect]
     Indication: BACK PAIN
     Route: 048
  2. ALEVE (CAPLET) [Suspect]
     Indication: PAIN IN EXTREMITY
  3. NAPROXEN [Suspect]
     Indication: PAIN IN EXTREMITY
  4. NAPROXEN [Suspect]
     Indication: BACK PAIN

REACTIONS (2)
  - GINGIVAL BLEEDING [None]
  - INCREASED TENDENCY TO BRUISE [None]
